FAERS Safety Report 9551003 (Version 1)
Quarter: 2013Q3

REPORT INFORMATION
  Report Type: Spontaneous
  Country: US (occurrence: US)
  Receive Date: 20130924
  Receipt Date: 20130924
  Transmission Date: 20140515
  Serious: No
  Sender: FDA-Public Use
  Company Number: US-SANOFI-AVENTIS-2013SA051596

PATIENT
  Age: 54 Year
  Sex: Female
  Weight: 45.35 kg

DRUGS (5)
  1. AUBAGIO [Suspect]
     Indication: MULTIPLE SCLEROSIS
     Route: 048
     Dates: start: 20121030
  2. L-THYROXINE [Concomitant]
     Indication: THYROID DISORDER
  3. METHYLPHENIDATE [Concomitant]
     Indication: FATIGUE
  4. CITALOPRAM [Concomitant]
     Indication: ANXIETY
  5. VITAMIN D3 [Concomitant]

REACTIONS (2)
  - Weight decreased [Not Recovered/Not Resolved]
  - Alopecia [Not Recovered/Not Resolved]
